FAERS Safety Report 17813158 (Version 7)
Quarter: 2020Q3

REPORT INFORMATION
  Report Type: Report from Study
  Country: US (occurrence: US)
  Receive Date: 20200521
  Receipt Date: 20200825
  Transmission Date: 20201102
  Serious: Yes (Hospitalization, Other)
  Sender: FDA-Public Use
  Company Number: US-ACTELION-A-NJ2020-205358

PATIENT
  Age: 74 Year
  Sex: Male

DRUGS (4)
  1. OPSUMIT [Suspect]
     Active Substance: MACITENTAN
     Indication: PULMONARY ARTERIAL HYPERTENSION
     Dosage: 10 MG, QD
     Route: 048
     Dates: start: 20200507
  2. OXYGEN. [Concomitant]
     Active Substance: OXYGEN
     Dosage: 6?7 L, PER MIN
  3. OXYGEN. [Concomitant]
     Active Substance: OXYGEN
     Dosage: 10 L, PER MIN
  4. ADEMPAS [Concomitant]
     Active Substance: RIOCIGUAT
     Dosage: 2.5 MG, TID

REACTIONS (7)
  - Dyspnoea [Unknown]
  - Generalised oedema [Unknown]
  - Pleural effusion [Unknown]
  - Hospitalisation [Unknown]
  - Fluid retention [Unknown]
  - Oxygen saturation decreased [Unknown]
  - Gastrooesophageal reflux disease [Unknown]

NARRATIVE: CASE EVENT DATE: 20200524
